FAERS Safety Report 4693644-3 (Version None)
Quarter: 2005Q2

REPORT INFORMATION
  Report Type: 
  Country: None (occurrence: None)
  Receive Date: 20050617
  Receipt Date: 20050503
  Transmission Date: 20051028
  Serious: Yes (Hospitalization, Disabling)
  Sender: FDA-Public Use
  Company Number: 2005UW07012

PATIENT
  Age: 76 Year
  Sex: Female
  Weight: 60.4 kg

DRUGS (2)
  1. CRESTOR [Suspect]
     Indication: HYPERLIPIDAEMIA
     Route: 048
     Dates: start: 20040301, end: 20041201
  2. LIPITOR [Concomitant]

REACTIONS (5)
  - BLOOD CREATINE PHOSPHOKINASE INCREASED [None]
  - FALL [None]
  - MUSCLE DISORDER [None]
  - MYALGIA [None]
  - PAIN [None]
